FAERS Safety Report 6572558-8 (Version None)
Quarter: 2010Q1

REPORT INFORMATION
  Report Type: 
  Country: None (occurrence: None)
  Receive Date: 20100205
  Receipt Date: 20100127
  Transmission Date: 20100710
  Serious: Yes (Other)
  Sender: FDA-Public Use
  Company Number: US-ABBOTT-10P-163-0622327-00

PATIENT
  Sex: Female

DRUGS (6)
  1. HUMIRA [Suspect]
     Indication: PSORIASIS
     Dosage: 2 DOSES ONLY
     Route: 058
     Dates: start: 20091230, end: 20100106
  2. SERTRALINE HCL [Concomitant]
     Indication: DEPRESSION
  3. SERTRALINE HCL [Concomitant]
     Indication: INSOMNIA
  4. SEROQUEL [Concomitant]
     Indication: DEPRESSION
  5. SEROQUEL [Concomitant]
     Indication: INSOMNIA
  6. TYLENOL-500 [Concomitant]
     Indication: DRUG USE FOR UNKNOWN INDICATION

REACTIONS (5)
  - CONFUSIONAL STATE [None]
  - CONVULSION [None]
  - LOSS OF CONSCIOUSNESS [None]
  - SYNCOPE [None]
  - TEMPORAL LOBE EPILEPSY [None]
